FAERS Safety Report 7049098-5 (Version None)
Quarter: 2010Q3

REPORT INFORMATION
  Report Type: 
  Country: None (occurrence: None)
  Receive Date: 20100923
  Receipt Date: 20100923
  Transmission Date: 20110219
  Serious: Yes (Hospitalization)
  Sender: FDA-Public Use
  Company Number: 009431

PATIENT
  Sex: Male

DRUGS (1)
  1. CIMZIA [Suspect]
     Indication: CROHN'S DISEASE
     Dosage: 400 MG 1X/4 WEEKLY SUBCUTANEOUS
     Route: 058
     Dates: start: 20100302

REACTIONS (3)
  - ASTHENIA [None]
  - COLOSTOMY [None]
  - GASTROINTESTINAL STOMA COMPLICATION [None]
